FAERS Safety Report 12068066 (Version 1)
Quarter: 2016Q1

REPORT INFORMATION
  Report Type: Spontaneous
  Country: US (occurrence: US)
  Receive Date: 20160211
  Receipt Date: 20160211
  Transmission Date: 20160526
  Serious: No
  Sender: FDA-Public Use
  Company Number: US-SMITH AND NEPHEW, INC-2015SMT00283

PATIENT
  Sex: Female
  Weight: 126.98 kg

DRUGS (3)
  1. REGRANEX [Suspect]
     Active Substance: BECAPLERMIN
     Indication: SKIN ULCER
     Dosage: UNK UNK, 1X/DAY
     Route: 061
     Dates: start: 20150714, end: 20150821
  2. METFORMIN [Concomitant]
     Active Substance: METFORMIN HYDROCHLORIDE
     Dosage: 1000 MG, 2X/DAY
  3. VITAMINS (NON-SPECIFIC) [Concomitant]
     Dosage: UNK

REACTIONS (2)
  - Wound complication [Recovering/Resolving]
  - Drug ineffective [Recovering/Resolving]

NARRATIVE: CASE EVENT DATE: 2015
